FAERS Safety Report 8056673-8 (Version None)
Quarter: 2012Q1

REPORT INFORMATION
  Report Type: 
  Country: None (occurrence: None)
  Receive Date: 20120119
  Receipt Date: 20120113
  Transmission Date: 20120608
  Serious: Yes (Hospitalization)
  Sender: FDA-Public Use
  Company Number: GB-PERRIGO-12GB000240

PATIENT
  Age: 72 Year
  Sex: Male

DRUGS (6)
  1. ACETAMINOPHEN [Concomitant]
     Indication: PAIN
     Dosage: 1 G, QID
     Route: 048
  2. SENNA [Concomitant]
     Indication: CONSTIPATION
     Dosage: 7.5 MG, QD
     Route: 048
     Dates: start: 20111201
  3. CODEINE SUL TAB [Concomitant]
     Indication: PAIN
     Dosage: UNK
     Route: 065
  4. NAPROXEN [Suspect]
     Indication: PAIN
     Dosage: 500 MG, BID
     Route: 048
     Dates: start: 20040101, end: 20120103
  5. ENOXAPARIN SODIUM [Suspect]
     Indication: KNEE ARTHROPLASTY
     Dosage: 40 MG, QD
     Route: 058
     Dates: start: 20111217, end: 20111226
  6. LACTULOSE [Concomitant]
     Indication: CONSTIPATION
     Dosage: 10 ML, BID
     Route: 048

REACTIONS (1)
  - RECTAL HAEMORRHAGE [None]
